FAERS Safety Report 5640128-1 (Version None)
Quarter: 2008Q1

REPORT INFORMATION
  Report Type: 
  Country: None (occurrence: None)
  Receive Date: 20080226
  Receipt Date: 20080226
  Transmission Date: 20080703
  Serious: Yes (Other)
  Sender: FDA-Public Use
  Company Number: None

PATIENT
  Age: 30 Year
  Sex: Male
  Weight: 83.9154 kg

DRUGS (1)
  1. TRAMADOL HCL [Suspect]
     Indication: NERVE INJURY
     Dosage: 200 MG DAILY PO
     Route: 048
     Dates: start: 20070601, end: 20080131

REACTIONS (7)
  - DEPRESSION [None]
  - DRUG DEPENDENCE [None]
  - EUPHORIC MOOD [None]
  - INFLUENZA [None]
  - RESTLESSNESS [None]
  - SLEEP DISORDER [None]
  - WITHDRAWAL SYNDROME [None]
